FAERS Safety Report 9580351 (Version 1)
Quarter: 2013Q4

REPORT INFORMATION
  Report Type: Spontaneous
  Country: US (occurrence: US)
  Receive Date: 20131002
  Receipt Date: 20131002
  Transmission Date: 20140711
  Serious: Yes (Death)
  Sender: FDA-Public Use
  Company Number: US-INCYTE CORPORATION-2013IN002215

PATIENT
  Sex: Male

DRUGS (3)
  1. JAKAFI [Suspect]
     Dosage: 10 MG, QD
     Route: 048
     Dates: start: 20130411, end: 201307
  2. METFORMIN [Concomitant]
  3. TRAMADOL [Concomitant]

REACTIONS (1)
  - Death [Fatal]
